FAERS Safety Report 5870511-0 (Version None)
Quarter: 2008Q3

REPORT INFORMATION
  Report Type: 
  Country: None (occurrence: None)
  Receive Date: 20080904
  Receipt Date: 20080903
  Transmission Date: 20090109
  Serious: Yes (Hospitalization)
  Sender: FDA-Public Use
  Company Number: DE-BRISTOL-MYERS SQUIBB COMPANY-13469044

PATIENT
  Age: 58 Year
  Sex: Female
  Weight: 47 kg

DRUGS (8)
  1. PACLITAXEL [Suspect]
     Indication: NON-SMALL CELL LUNG CANCER
     Dosage: 200 MG/M2 ON DAY 1 OF 3 WEEK
     Route: 042
     Dates: start: 20060720, end: 20060720
  2. CARBOPLATIN [Suspect]
     Indication: NON-SMALL CELL LUNG CANCER
     Dosage: UNIT DOSE: 6 AUC TDD 780 MG (ON DAY 1 OF 3-WEEK CYCLE)
     Route: 042
     Dates: start: 20060720, end: 20060720
  3. TRAMADOL HCL [Concomitant]
     Route: 048
     Dates: start: 20060717
  4. DIPYRONE TAB [Concomitant]
     Route: 048
     Dates: start: 20060717
  5. RANITIDINE [Concomitant]
     Route: 042
     Dates: start: 20060720, end: 20060720
  6. DIMENHYDRINATE [Concomitant]
     Route: 048
     Dates: start: 20060720
  7. ONDANSETRON [Concomitant]
     Route: 048
     Dates: start: 20060720
  8. CLEMASTINE FUMARATE [Concomitant]
     Route: 042
     Dates: start: 20060720, end: 20060720

REACTIONS (3)
  - DIARRHOEA [None]
  - PNEUMONITIS [None]
  - PYREXIA [None]
